FAERS Safety Report 10098774 (Version 3)
Quarter: 2014Q3

REPORT INFORMATION
  Report Type: Spontaneous
  Country: US (occurrence: US)
  Receive Date: 20140423
  Receipt Date: 20140903
  Transmission Date: 20150326
  Serious: Yes (Hospitalization, Other)
  Sender: FDA-Public Use
  Company Number: PHEH2014US007885

PATIENT
  Age: 53 Year
  Sex: Female
  Weight: 57.15 kg

DRUGS (1)
  1. LAMISIL [Suspect]
     Active Substance: TERBINAFINE HYDROCHLORIDE
     Indication: ONYCHOMYCOSIS
     Dosage: UNK UKN, QD
     Route: 048
     Dates: start: 20120920, end: 20121220

REACTIONS (14)
  - Pancreatitis [Recovering/Resolving]
  - Pain [Unknown]
  - Abdominal tenderness [Unknown]
  - Infection [Unknown]
  - Coronary artery insufficiency [Unknown]
  - Lipids increased [Unknown]
  - Myocardial infarction [Unknown]
  - Back pain [Unknown]
  - Flank pain [Unknown]
  - Vomiting [Unknown]
  - Pancreatic necrosis [Unknown]
  - Pancreatic cyst [Unknown]
  - Cardiac disorder [Unknown]
  - Nausea [Unknown]

NARRATIVE: CASE EVENT DATE: 20130219
